FAERS Safety Report 13239314 (Version 1)
Quarter: 2017Q1

REPORT INFORMATION
  Report Type: Report from Study
  Country: US (occurrence: US)
  Receive Date: 20170216
  Receipt Date: 20170216
  Transmission Date: 20170428
  Serious: Yes (Hospitalization)
  Sender: FDA-Public Use
  Company Number: US-ASTRAZENECA-2016SF21918

PATIENT
  Sex: Female

DRUGS (1)
  1. BEVESPI AEROSPHERE [Suspect]
     Active Substance: FORMOTEROL FUMARATE\GLYCOPYRROLATE
     Route: 055

REACTIONS (5)
  - Feeling abnormal [Unknown]
  - Cerebrovascular accident [Unknown]
  - Malaise [Unknown]
  - Headache [Unknown]
  - Tremor [Unknown]

NARRATIVE: CASE EVENT DATE: 20161216
